FAERS Safety Report 24918581 (Version 1)
Quarter: 2025Q1

REPORT INFORMATION
  Report Type: Spontaneous
  Country: US (occurrence: US)
  Receive Date: 20250203
  Receipt Date: 20250203
  Transmission Date: 20250408
  Serious: Yes (Hospitalization)
  Sender: ABBVIE
  Company Number: US-OTSUKA-2024_022354

PATIENT
  Age: 23 Year
  Sex: Female
  Weight: 55 kg

DRUGS (18)
  1. VRAYLAR [Suspect]
     Active Substance: CARIPRAZINE
     Indication: Product used for unknown indication
     Route: 065
     Dates: start: 202308
  2. EFFEXOR [Concomitant]
     Active Substance: VENLAFAXINE HYDROCHLORIDE
     Indication: Depression
     Dosage: 225 MG, QD
     Route: 065
  3. PRAVASTATIN [Concomitant]
     Active Substance: PRAVASTATIN
     Indication: Blood cholesterol increased
     Dosage: 20 MG, QD (BEEN ON FOR A FEW YEARS)
     Route: 065
  4. METOPROLOL [Concomitant]
     Active Substance: METOPROLOL
     Indication: Heart rate increased
     Dosage: 1/2 OF 25MG TABLET ONCE A DAY
     Route: 065
     Dates: start: 202310
  5. NAPROXEN [Suspect]
     Active Substance: NAPROXEN
     Indication: Arthralgia
     Route: 065
  6. MIRALAX [Concomitant]
     Active Substance: POLYETHYLENE GLYCOL 3350
     Indication: Constipation
     Route: 065
  7. OMEPRAZOLE [Suspect]
     Active Substance: OMEPRAZOLE
     Indication: Gastrooesophageal reflux disease
     Dosage: 40 MG, QD
     Route: 065
  8. SUMATRIPTAN [Concomitant]
     Active Substance: SUMATRIPTAN
     Indication: Migraine
     Route: 065
     Dates: start: 20240421
  9. BENADRYL [Concomitant]
     Active Substance: DIPHENHYDRAMINE HYDROCHLORIDE
     Indication: Product used for unknown indication
     Route: 065
  10. ABILIFY [Suspect]
     Active Substance: ARIPIPRAZOLE
     Indication: Depression
     Dosage: 1 DF, QD (ONE TABLET DAILY TAKEN BY MOUTH)
     Route: 048
  11. REXULTI [Suspect]
     Active Substance: BREXPIPRAZOLE
     Indication: Mood swings
     Route: 048
     Dates: start: 20240924
  12. REXULTI [Suspect]
     Active Substance: BREXPIPRAZOLE
     Indication: Mood swings
     Dosage: 0.5 MG QD
     Route: 065
     Dates: start: 20240802
  13. ROBAXIN [Concomitant]
     Active Substance: METHOCARBAMOL
     Indication: Myalgia
     Route: 065
     Dates: start: 202406
  14. EMGALITY [Concomitant]
     Active Substance: GALCANEZUMAB-GNLM
     Indication: Migraine
  15. COGENTIN [Suspect]
     Active Substance: BENZTROPINE MESYLATE
     Indication: Product used for unknown indication
     Dosage: 1 MG, BID
     Route: 065
  16. COGENTIN [Suspect]
     Active Substance: BENZTROPINE MESYLATE
     Indication: Product used for unknown indication
     Dosage: 2 MG, BID
     Route: 065
  17. COGENTIN [Suspect]
     Active Substance: BENZTROPINE MESYLATE
     Indication: Product used for unknown indication
     Dosage: 1 MG, BID
     Route: 065
  18. NEXPLANON [Suspect]
     Active Substance: ETONOGESTREL
     Indication: Contraception
     Route: 065

REACTIONS (20)
  - Akathisia [Recovered/Resolved]
  - Sensation of foreign body [Unknown]
  - Dysphemia [Unknown]
  - Product use complaint [Unknown]
  - Emotional distress [Not Recovered/Not Resolved]
  - Oropharyngeal pain [Unknown]
  - Musculoskeletal pain [Recovered/Resolved]
  - Hypotension [Not Recovered/Not Resolved]
  - Joint stiffness [Unknown]
  - Lip dry [Unknown]
  - Dysphonia [Unknown]
  - Anger [Not Recovered/Not Resolved]
  - Feeling abnormal [Not Recovered/Not Resolved]
  - Pain in extremity [Unknown]
  - Dehydration [Unknown]
  - Panic disorder [Unknown]
  - Dry throat [Unknown]
  - Dry mouth [Unknown]
  - Arthralgia [Unknown]
  - Self-injurious ideation [Unknown]

NARRATIVE: CASE EVENT DATE: 20240806
